FAERS Safety Report 15500522 (Version 1)
Quarter: 2018Q4

REPORT INFORMATION
  Report Type: Spontaneous
  Country: US (occurrence: US)
  Receive Date: 20181015
  Receipt Date: 20181015
  Transmission Date: 20190205
  Serious: Yes (Hospitalization)
  Sender: FDA-Public Use
  Company Number: None

PATIENT
  Sex: Male

DRUGS (18)
  1. FOLBIC [Concomitant]
     Active Substance: CYANOCOBALAMIN\FOLIC ACID\PYRIDOXINE
  2. ZOLPIDEM ER [Concomitant]
     Active Substance: ZOLPIDEM\ZOLPIDEM TARTRATE
  3. RASUVO [Concomitant]
     Active Substance: METHOTREXATE SODIUM
  4. DULOXETINE. [Concomitant]
     Active Substance: DULOXETINE
  5. RISEDRONATE [Concomitant]
     Active Substance: RISEDRONATE SODIUM
  6. LYRICA [Concomitant]
     Active Substance: PREGABALIN
  7. VIAGRA [Concomitant]
     Active Substance: SILDENAFIL CITRATE
  8. TESTOST CYP [Concomitant]
     Active Substance: TESTOSTERONE CYPIONATE
  9. TADALAFIL. [Concomitant]
     Active Substance: TADALAFIL
  10. BRILINTA [Concomitant]
     Active Substance: TICAGRELOR
  11. TIZANIDINE. [Concomitant]
     Active Substance: TIZANIDINE
  12. MINOCYCLINE [Concomitant]
     Active Substance: MINOCYCLINE\MINOCYCLINE HYDROCHLORIDE
  13. VIRT-VITE [Concomitant]
     Active Substance: CYANOCOBALAMIN\FOLIC ACID\PYRIDOXINE HYDROCHLORIDE
  14. NITROGLYCERIN. [Concomitant]
     Active Substance: NITROGLYCERIN
  15. ORENCIA [Suspect]
     Active Substance: ABATACEPT
     Indication: RHEUMATOID ARTHRITIS
     Dosage: ?          OTHER FREQUENCY:QW;?
     Route: 058
     Dates: start: 20161023
  16. ROSUVASTATIN. [Concomitant]
     Active Substance: ROSUVASTATIN
  17. LOSARTAN POT [Concomitant]
     Active Substance: LOSARTAN POTASSIUM
  18. TRAMADOL. [Concomitant]
     Active Substance: TRAMADOL

REACTIONS (1)
  - Cancer surgery [None]
